FAERS Safety Report 15464347 (Version 2)
Quarter: 2018Q4

REPORT INFORMATION
  Report Type: Spontaneous
  Country: DE (occurrence: DE)
  Receive Date: 20181004
  Receipt Date: 20181008
  Transmission Date: 20190204
  Serious: Yes (Other)
  Sender: FDA-Public Use
  Company Number: DE-ALLERGAN-1847412US

PATIENT
  Age: 59 Year
  Sex: Female

DRUGS (10)
  1. METHYLPREDNISOLONE. [Suspect]
     Active Substance: METHYLPREDNISOLONE
     Indication: AUTOIMMUNE THYROIDITIS
     Dosage: 5 MG X 500 MG FOR FIVE CONSECUTIVE DAYS
     Route: 065
     Dates: start: 20160101, end: 20160901
  2. RISPERIDONE. [Suspect]
     Active Substance: RISPERIDONE
     Indication: NERVOUS SYSTEM DISORDER
     Dosage: 4 MG, QD
     Route: 065
     Dates: start: 20160101, end: 20160901
  3. FLUPENTIXOL [Suspect]
     Active Substance: FLUPENTIXOL
     Indication: NERVOUS SYSTEM DISORDER
     Dosage: 1.5 MG, QD
     Route: 065
     Dates: start: 20160101, end: 20160901
  4. ARIPIPRAZOLE. [Suspect]
     Active Substance: ARIPIPRAZOLE
     Indication: NERVOUS SYSTEM DISORDER
     Dosage: 15 MG, QD
     Route: 065
     Dates: start: 20160101, end: 20160901
  5. VENLAFAXINE HYDROCHLORIDE. [Suspect]
     Active Substance: VENLAFAXINE HYDROCHLORIDE
     Indication: DEPRESSION
     Dosage: 150 MG, QD
     Route: 065
     Dates: start: 20160101, end: 20160901
  6. METHYLPREDNISOLONE. [Suspect]
     Active Substance: METHYLPREDNISOLONE
     Indication: HASHIMOTO^S ENCEPHALOPATHY
     Dosage: UNK
     Route: 065
  7. LORAZEPAM. [Suspect]
     Active Substance: LORAZEPAM
     Indication: ANXIETY
     Dosage: 5 MG, QD
     Route: 065
     Dates: start: 20160101, end: 20160901
  8. CITALOPRAM HYDROBROMIDE - BP [Suspect]
     Active Substance: CITALOPRAM HYDROBROMIDE
     Indication: DEPRESSION
     Dosage: 20 MG, QD
     Route: 065
     Dates: start: 20160101, end: 20160901
  9. QUETIAPINE FUMARATE. [Suspect]
     Active Substance: QUETIAPINE FUMARATE
     Indication: NERVOUS SYSTEM DISORDER
     Dosage: 200 MG, QD
     Route: 065
     Dates: start: 20160101, end: 20160901
  10. AMISULPRIDE [Suspect]
     Active Substance: AMISULPRIDE
     Indication: NERVOUS SYSTEM DISORDER
     Dosage: 400 MG, QD
     Route: 065
     Dates: start: 20160101, end: 20160901

REACTIONS (4)
  - Apathy [Recovering/Resolving]
  - Cognitive disorder [Recovering/Resolving]
  - Condition aggravated [Recovering/Resolving]
  - Drug ineffective [Unknown]

NARRATIVE: CASE EVENT DATE: 2016
